FAERS Safety Report 13680136 (Version 1)
Quarter: 2017Q2

REPORT INFORMATION
  Report Type: Report from Study
  Country: US (occurrence: US)
  Receive Date: 20170622
  Receipt Date: 20170622
  Transmission Date: 20170830
  Serious: Yes (Hospitalization)
  Sender: FDA-Public Use
  Company Number: US-ACTELION-A-US2017-155780

PATIENT
  Age: 70 Year
  Sex: Female

DRUGS (5)
  1. FUROSEMIDE. [Concomitant]
     Active Substance: FUROSEMIDE
  2. SILDENAFIL. [Concomitant]
     Active Substance: SILDENAFIL
  3. AMITRIPTYLINE [Concomitant]
     Active Substance: AMITRIPTYLINE
  4. SIMVASTATIN. [Concomitant]
     Active Substance: SIMVASTATIN
  5. OPSUMIT [Suspect]
     Active Substance: MACITENTAN
     Indication: PULMONARY HYPERTENSION
     Dosage: 10 MG, QD
     Route: 048
     Dates: start: 20160808

REACTIONS (1)
  - Lung transplant [Unknown]
